FAERS Safety Report 15722612 (Version 1)
Quarter: 2018Q4

REPORT INFORMATION
  Report Type: Spontaneous
  Country: SE (occurrence: SE)
  Receive Date: 20181214
  Receipt Date: 20181214
  Transmission Date: 20190205
  Serious: Yes (Disabling, Other)
  Sender: FDA-Public Use
  Company Number: SE-TEVA-2018-SE-986468

PATIENT
  Age: 51 Year
  Sex: Female

DRUGS (1)
  1. DOCETAXEL ACTAVIS [Suspect]
     Active Substance: DOCETAXEL
     Route: 065
     Dates: end: 20160705

REACTIONS (5)
  - Ageusia [Unknown]
  - Chemical burn [Unknown]
  - Chronic tonsillitis [Unknown]
  - Alopecia [Unknown]
  - Tinnitus [Unknown]

NARRATIVE: CASE EVENT DATE: 201611
